FAERS Safety Report 10021049 (Version 2)
Quarter: 2014Q1

REPORT INFORMATION
  Report Type: Report from Study
  Country: US (occurrence: US)
  Receive Date: 20140319
  Receipt Date: 20140331
  Transmission Date: 20141002
  Serious: Yes (Death)
  Sender: FDA-Public Use
  Company Number: US-ASTELLAS-2014US002697

PATIENT
  Age: 87 Year
  Sex: Male

DRUGS (1)
  1. ERLOTINIB TABLET [Suspect]
     Indication: LUNG NEOPLASM MALIGNANT
     Dosage: 25 MG, TID
     Route: 065
     Dates: start: 20130826

REACTIONS (3)
  - Incorrect dose administered [Unknown]
  - Sepsis [Fatal]
  - Lung neoplasm malignant [Fatal]
